FAERS Safety Report 4958236-7 (Version None)
Quarter: 2006Q1

REPORT INFORMATION
  Report Type: 
  Country: None (occurrence: None)
  Receive Date: 20060330
  Receipt Date: 20050413
  Transmission Date: 20060701
  Serious: Yes (Death)
  Sender: FDA-Public Use
  Company Number: JP-GLAXOSMITHKLINE-B0378006A

PATIENT
  Age: 51 Year
  Sex: Male

DRUGS (1)
  1. FLOLAN [Suspect]
     Indication: PULMONARY HYPERTENSION
     Route: 042
     Dates: start: 19990506, end: 20050309

REACTIONS (1)
  - COMPLICATIONS OF TRANSPLANT SURGERY [None]
